FAERS Safety Report 6759414-7 (Version None)
Quarter: 2010Q2

REPORT INFORMATION
  Report Type: 
  Country: None (occurrence: None)
  Receive Date: 20100603
  Receipt Date: 20100524
  Transmission Date: 20101027
  Serious: Yes (Hospitalization)
  Sender: FDA-Public Use
  Company Number: 602334

PATIENT
  Age: 19 Year
  Sex: Female
  Weight: 70 kg

DRUGS (5)
  1. FENTANYL CITRATE [Suspect]
     Indication: INDUCTION OF ANAESTHESIA
     Dosage: 100 UG MICROGRAM(S), INTRAVENOUS
     Route: 042
  2. PROPOFOL [Suspect]
     Indication: INDUCTION OF ANAESTHESIA
     Dosage: 150 MG MILLIGRAM(S), INTRAVENOUS
     Route: 042
  3. MIDAZOLAM HCL [Concomitant]
  4. SEVOFLURANE [Concomitant]
  5. SUCCINYLCHOLINE CHLORIDE [Concomitant]

REACTIONS (8)
  - ACUTE MYOCARDIAL INFARCTION [None]
  - BRADYCARDIA [None]
  - CARDIAC FAILURE ACUTE [None]
  - CARDIOGENIC SHOCK [None]
  - HYPOTENSION [None]
  - NO THERAPEUTIC RESPONSE [None]
  - PULMONARY OEDEMA [None]
  - SPUTUM ABNORMAL [None]
